FAERS Safety Report 11681044 (Version 3)
Quarter: 2015Q4

REPORT INFORMATION
  Report Type: Spontaneous
  Country: US (occurrence: US)
  Receive Date: 20151027
  Receipt Date: 20151110
  Transmission Date: 20160304
  Serious: No
  Sender: FDA-Public Use
  Company Number: US-ELI_LILLY_AND_COMPANY-US201006003076

PATIENT
  Age: 72 Year
  Sex: Female

DRUGS (10)
  1. CAFFEINE. [Concomitant]
     Active Substance: CAFFEINE
     Dosage: UNK, UNKNOWN
     Route: 065
  2. RECLAST [Concomitant]
     Active Substance: ZOLEDRONIC ACID
     Dosage: UNK, UNKNOWN
     Route: 065
     Dates: start: 2008
  3. FORTEO [Suspect]
     Active Substance: TERIPARATIDE
     Dosage: 20 UG, QD
     Route: 065
  4. SALT [Concomitant]
     Active Substance: SODIUM CHLORIDE
     Dosage: UNK, UNKNOWN
     Route: 065
  5. FORTEO [Suspect]
     Active Substance: TERIPARATIDE
     Dosage: 20 UG, QD
  6. FORTEO [Suspect]
     Active Substance: TERIPARATIDE
     Indication: OSTEOPOROSIS
     Dosage: 20 UG, QD
  7. FORTEO [Suspect]
     Active Substance: TERIPARATIDE
     Dosage: 20 UG, QD
     Route: 065
  8. FORTEO [Suspect]
     Active Substance: TERIPARATIDE
     Dosage: 20 UG, QD
     Route: 065
  9. FORTEO [Suspect]
     Active Substance: TERIPARATIDE
     Dosage: 20 UG, QD
     Route: 065
  10. FORTEO [Suspect]
     Active Substance: TERIPARATIDE
     Dosage: 20 UG, QD
     Route: 065

REACTIONS (12)
  - Diarrhoea [Not Recovered/Not Resolved]
  - Abdominal discomfort [Unknown]
  - Weight decreased [Unknown]
  - Muscle spasms [Recovering/Resolving]
  - Solar lentigo [Unknown]
  - Asthenia [Unknown]
  - Headache [Unknown]
  - Helicobacter infection [Unknown]
  - Sinusitis [Unknown]
  - Dizziness [Recovered/Resolved]
  - Nausea [Unknown]
  - Frustration [Unknown]

NARRATIVE: CASE EVENT DATE: 201005
